FAERS Safety Report 10522586 (Version 1)
Quarter: 2014Q4

REPORT INFORMATION
  Report Type: Spontaneous
  Country: US (occurrence: None)
  Receive Date: 20141010
  Receipt Date: 20141010
  Transmission Date: 20150528
  Serious: Yes (Hospitalization)
  Sender: FDA-Public Use
  Company Number: AMAG201400365

PATIENT
  Age: 65 Year
  Sex: Male
  Weight: 117.9 kg

DRUGS (1)
  1. FERAHEME [Suspect]
     Active Substance: FERUMOXYTOL NON-STOICHIOMETRIC MAGNETITE
     Indication: IRON DEFICIENCY ANAEMIA
     Dosage: SINGLE, IV PUSH
     Route: 042
     Dates: start: 20140930, end: 20140930

REACTIONS (10)
  - Cyanosis [None]
  - Flushing [None]
  - White blood cell count increased [None]
  - Back pain [None]
  - Hyperhidrosis [None]
  - Cardio-respiratory arrest [None]
  - Unresponsive to stimuli [None]
  - Paraesthesia [None]
  - Dyspnoea [None]
  - Hypotension [None]

NARRATIVE: CASE EVENT DATE: 20140930
